FAERS Safety Report 24099360 (Version 1)
Quarter: 2024Q3

REPORT INFORMATION
  Report Type: Spontaneous
  Country: AU (occurrence: AU)
  Receive Date: 20240716
  Receipt Date: 20240716
  Transmission Date: 20241016
  Serious: Yes (Other)
  Sender: BEIGENE
  Company Number: AU-BEIGENE-BGN-2024-010799

PATIENT

DRUGS (1)
  1. BRUKINSA [Suspect]
     Active Substance: ZANUBRUTINIB
     Indication: Product used for unknown indication
     Route: 048

REACTIONS (4)
  - Aspergillus infection [Unknown]
  - Skin cancer [Unknown]
  - Incision site haemorrhage [Unknown]
  - Skin neoplasm excision [Unknown]
